FAERS Safety Report 6561580-3 (Version None)
Quarter: 2010Q1

REPORT INFORMATION
  Report Type: 
  Country: None (occurrence: None)
  Receive Date: 20100130
  Receipt Date: 20091019
  Transmission Date: 20100710
  Serious: No
  Sender: FDA-Public Use
  Company Number: US-ABBOTT-09P-163-0604424-00

PATIENT
  Sex: Male
  Weight: 83.99 kg

DRUGS (2)
  1. HUMIRA [Suspect]
     Indication: RHEUMATOID ARTHRITIS
     Route: 058
     Dates: start: 20080301
  2. FLOMAX [Concomitant]
     Indication: PROSTATIC DISORDER
     Dosage: UNKNOWN
     Route: 048

REACTIONS (3)
  - HERPES ZOSTER [None]
  - SCAB [None]
  - SCAR [None]
